FAERS Safety Report 4541755-5 (Version None)
Quarter: 2004Q4

REPORT INFORMATION
  Report Type: 
  Country: None (occurrence: None)
  Receive Date: 20041227
  Receipt Date: 20041215
  Transmission Date: 20050328
  Serious: Yes (Hospitalization, Disabling)
  Sender: FDA-Public Use
  Company Number: 2001052011JP

PATIENT
  Age: 13 Year
  Sex: Male
  Weight: 37 kg

DRUGS (10)
  1. CLINDA PHOSPHATE [Suspect]
     Indication: THROAT IRRITATION
     Dosage: INTRAVENOUS
     Route: 042
     Dates: start: 20000919, end: 20000919
  2. CEFCAPENE PIVOXIL (CEFCAPENE PIVOXIL) [Concomitant]
     Indication: PYREXIA
     Dosage: 100 MG,ORAL
     Dates: start: 20000916, end: 20000917
  3. CEFDITOREN PIVOXIL (CEFDITOREN PIVOXIL) [Suspect]
     Indication: PYREXIA
     Dosage: (100 MG, 3 D), ORAL
     Route: 048
     Dates: start: 20000918, end: 20000918
  4. AMANTADINE HCL [Concomitant]
     Indication: PYREXIA
     Dosage: ORAL
     Route: 048
     Dates: start: 20000916, end: 20000917
  5. DEXTROMETHORPHAN HYDROBROMIDE (DEXTROMETHORPHAN HYDROBROMIDE) [Concomitant]
  6. CARBOCISTEINE (CARBOCISTEINE) [Concomitant]
  7. PHENACETIN (PHENACETIN) [Concomitant]
  8. ANTIBIOCTICS (ANTIBIOTICS) [Concomitant]
  9. DIPYRONE TAB [Concomitant]
  10. HYDROCORTISONE SODIUM SUCCINATE [Concomitant]

REACTIONS (11)
  - BRONCHIECTASIS [None]
  - DYSPNOEA [None]
  - EMPHYSEMA [None]
  - HAEMATURIA [None]
  - LIVER DISORDER [None]
  - LUNG TRANSPLANT [None]
  - MOUTH HAEMORRHAGE [None]
  - OBLITERATIVE BRONCHIOLITIS [None]
  - PHARYNGOLARYNGEAL PAIN [None]
  - RESPIRATORY TRACT HAEMORRHAGE [None]
  - TOXIC EPIDERMAL NECROLYSIS [None]
